FAERS Safety Report 19295425 (Version 1)
Quarter: 2021Q2

REPORT INFORMATION
  Report Type: Spontaneous
  Country: MY (occurrence: MY)
  Receive Date: 20210524
  Receipt Date: 20210524
  Transmission Date: 20210717
  Serious: Yes (Death, Other)
  Sender: FDA-Public Use
  Company Number: MY-AMGEN-MYSSP2021076095

PATIENT
  Sex: Male

DRUGS (7)
  1. PYRIDOXINE [Concomitant]
     Active Substance: PYRIDOXINE
     Indication: TUBERCULOUS PLEURISY
  2. XGEVA [Suspect]
     Active Substance: DENOSUMAB
     Indication: HYPERCALCAEMIA
     Dosage: 120 MILLIGRAM
     Route: 058
  3. ISONIAZID. [Concomitant]
     Active Substance: ISONIAZID
     Indication: TUBERCULOUS PLEURISY
  4. RIFAMPICIN [Concomitant]
     Active Substance: RIFAMPIN
     Indication: TUBERCULOUS PLEURISY
  5. ETHAMBUTOL [Concomitant]
     Active Substance: ETHAMBUTOL HYDROCHLORIDE
     Indication: TUBERCULOUS PLEURISY
  6. XGEVA [Suspect]
     Active Substance: DENOSUMAB
     Indication: OFF LABEL USE
  7. PYRAZINAMIDE. [Concomitant]
     Active Substance: PYRAZINAMIDE
     Indication: TUBERCULOUS PLEURISY

REACTIONS (6)
  - Respiratory failure [Fatal]
  - Pneumonia [Fatal]
  - Off label use [Unknown]
  - Cardio-respiratory arrest [Fatal]
  - Drug effective for unapproved indication [Unknown]
  - Multiple organ dysfunction syndrome [Fatal]
